FAERS Safety Report 10248263 (Version 1)
Quarter: 2014Q2

REPORT INFORMATION
  Report Type: Spontaneous
  Country: MY (occurrence: MY)
  Receive Date: 20140620
  Receipt Date: 20140620
  Transmission Date: 20141212
  Serious: Yes (Hospitalization)
  Sender: FDA-Public Use
  Company Number: MY-ROCHE-1419137

PATIENT
  Sex: 0

DRUGS (1)
  1. MIRCERA [Suspect]
     Indication: PRODUCT USED FOR UNKNOWN INDICATION
     Dosage: 200MG MONTHLY
     Route: 065
     Dates: start: 20130104

REACTIONS (1)
  - Arteriovenous fistula site haemorrhage [Unknown]
